FAERS Safety Report 5049675-7 (Version None)
Quarter: 2006Q3

REPORT INFORMATION
  Report Type: 
  Country: None (occurrence: None)
  Receive Date: 20060706
  Receipt Date: 20060629
  Transmission Date: 20061208
  Serious: Yes (Life-Threatening, Hospitalization, Other)
  Sender: FDA-Public Use
  Company Number: 200610920GDS

PATIENT
  Age: 80 Year
  Sex: Male
  Weight: 80 kg

DRUGS (6)
  1. SORAFENIB [Suspect]
     Indication: RENAL CELL CARCINOMA STAGE UNSPECIFIED
     Dosage: 400 MG, BID, ORAL; SEE IMAGE
     Route: 048
     Dates: start: 20051215, end: 20060207
  2. SORAFENIB [Suspect]
     Indication: RENAL CELL CARCINOMA STAGE UNSPECIFIED
     Dosage: 400 MG, BID, ORAL; SEE IMAGE
     Route: 048
     Dates: start: 20060209
  3. MILURIT [Concomitant]
  4. FUROSEMIDE [Concomitant]
  5. THEOSPIREX [Concomitant]
  6. AMLOZEK [Concomitant]

REACTIONS (3)
  - CONDITION AGGRAVATED [None]
  - PROTEINURIA [None]
  - RENAL FAILURE [None]
